FAERS Safety Report 6029604-X (Version None)
Quarter: 2009Q1

REPORT INFORMATION
  Report Type: 
  Country: None (occurrence: None)
  Receive Date: 20090107
  Receipt Date: 20081223
  Transmission Date: 20090719
  Serious: Yes (Other)
  Sender: FDA-Public Use
  Company Number: PL-JNJFOC-20081106228

PATIENT
  Age: 17 Year
  Sex: Male
  Weight: 65 kg

DRUGS (2)
  1. REMICADE [Suspect]
     Dosage: 2 INFUSIONS ON UNKNOWN DATES
     Route: 042
  2. REMICADE [Suspect]
     Indication: CROHN'S DISEASE
     Dosage: 2 INFUSIONS ON UNKNOWN DATES
     Route: 042

REACTIONS (4)
  - ASPARTATE AMINOTRANSFERASE INCREASED [None]
  - ASTHENIA [None]
  - BLOOD CREATINE PHOSPHOKINASE INCREASED [None]
  - MUSCLE INJURY [None]
